FAERS Safety Report 8315141-6 (Version None)
Quarter: 2012Q2

REPORT INFORMATION
  Report Type: 
  Country: None (occurrence: None)
  Receive Date: 20120426
  Receipt Date: 20120424
  Transmission Date: 20120825
  Serious: Yes (Death, Hospitalization)
  Sender: FDA-Public Use
  Company Number: US-GLAXOSMITHKLINE-A0930967A

PATIENT
  Age: 44 Year
  Sex: Male
  Weight: 139.5 kg

DRUGS (7)
  1. AVANDIA [Suspect]
     Indication: DIABETES MELLITUS
     Dosage: 4MG TWICE PER DAY
     Route: 048
     Dates: start: 20000530, end: 20071101
  2. LYRICA [Concomitant]
  3. AMARYL [Concomitant]
  4. CRESTOR [Concomitant]
  5. DIOVAN [Concomitant]
  6. ANDROGEL [Concomitant]
  7. INSULIN [Concomitant]

REACTIONS (5)
  - DEATH [None]
  - CORONARY ARTERY DISEASE [None]
  - CARDIAC FAILURE CONGESTIVE [None]
  - ISCHAEMIC CARDIOMYOPATHY [None]
  - CARDIOVASCULAR DISORDER [None]
